FAERS Safety Report 10265453 (Version 1)
Quarter: 2014Q2

REPORT INFORMATION
  Report Type: Spontaneous
  Country: US (occurrence: None)
  Receive Date: 20140625
  Receipt Date: 20140625
  Transmission Date: 20141212
  Serious: Yes (Hospitalization)
  Sender: FDA-Public Use
  Company Number: None

PATIENT
  Age: 48 Year
  Sex: Female
  Weight: 61.4 kg

DRUGS (2)
  1. SIMEPREVIR [Suspect]
     Indication: HEPATITIS C
     Route: 048
     Dates: start: 20140311
  2. SOFOSBUVIR [Suspect]
     Indication: HEPATITIS C
     Route: 048

REACTIONS (9)
  - Abdominal pain upper [None]
  - Nausea [None]
  - Vomiting [None]
  - Pyrexia [None]
  - Chills [None]
  - Diarrhoea [None]
  - Constipation [None]
  - Jaundice [None]
  - Chest pain [None]
